FAERS Safety Report 7524628-5 (Version None)
Quarter: 2011Q2

REPORT INFORMATION
  Report Type: 
  Country: None (occurrence: None)
  Receive Date: 20110525
  Receipt Date: 20110510
  Transmission Date: 20111010
  Serious: Yes (Hospitalization, Other)
  Sender: FDA-Public Use
  Company Number: 2011MA005774

PATIENT
  Age: 35 Year
  Sex: Female

DRUGS (1)
  1. FEVERALL [Suspect]
     Indication: DRUG ADMINISTRATION ERROR
     Dosage: 8 G, 1X

REACTIONS (2)
  - INCORRECT DOSE ADMINISTERED [None]
  - WRONG DRUG ADMINISTERED [None]
